FAERS Safety Report 18652685 (Version 2)
Quarter: 2020Q4

REPORT INFORMATION
  Report Type: Spontaneous
  Country: US (occurrence: US)
  Receive Date: 20201223
  Receipt Date: 20201229
  Transmission Date: 20210114
  Serious: Yes (Death, Life-Threatening, Hospitalization, Other)
  Sender: FDA-Public Use
  Company Number: US-VELOXIS PHARMACEUTICALS-2020VELUS-001045

PATIENT
  Age: 65 Year
  Sex: Male

DRUGS (6)
  1. PREDNISONE. [Suspect]
     Active Substance: PREDNISONE
     Indication: IMMUNOSUPPRESSANT DRUG THERAPY
  2. ENVARSUS XR [Suspect]
     Active Substance: TACROLIMUS
     Indication: IMMUNOSUPPRESSION
  3. PREDNISONE. [Suspect]
     Active Substance: PREDNISONE
     Indication: PROPHYLAXIS AGAINST TRANSPLANT REJECTION
     Dosage: 5 MG, QD
     Route: 065
  4. MYCOPHENOLATE [Suspect]
     Active Substance: MYCOPHENOLIC ACID
     Indication: PROPHYLAXIS AGAINST TRANSPLANT REJECTION
     Dosage: 250 MG, Q12H
     Route: 065
  5. ENVARSUS XR [Suspect]
     Active Substance: TACROLIMUS
     Indication: PROPHYLAXIS AGAINST TRANSPLANT REJECTION
     Dosage: 2 MG, Q12H
     Route: 065
  6. MYCOPHENOLATE [Suspect]
     Active Substance: MYCOPHENOLIC ACID
     Indication: IMMUNOSUPPRESSANT DRUG THERAPY

REACTIONS (22)
  - Multiple organ dysfunction syndrome [Fatal]
  - Failure to thrive [Unknown]
  - Abscess [Unknown]
  - Sepsis syndrome [Unknown]
  - Clostridium difficile colitis [Unknown]
  - Renal failure [Unknown]
  - Pleural effusion [Unknown]
  - Cellulitis [Unknown]
  - Tenosynovitis [Unknown]
  - Skin lesion [Unknown]
  - Urosepsis [Unknown]
  - Acarodermatitis [Unknown]
  - Brain abscess [Fatal]
  - Escherichia infection [Unknown]
  - Acidosis [Unknown]
  - Generalised oedema [Unknown]
  - Mycobacterium haemophilum infection [Fatal]
  - Osteomyelitis acute [Fatal]
  - Osteomyelitis chronic [Fatal]
  - Mental status changes [Unknown]
  - Septic shock [Fatal]
  - Colitis [Unknown]
